FAERS Safety Report 23195817 (Version 2)
Quarter: 2024Q2

REPORT INFORMATION
  Report Type: Report from Study
  Country: US (occurrence: US)
  Receive Date: 20231117
  Receipt Date: 20240405
  Transmission Date: 20240716
  Serious: No
  Sender: FDA-Public Use
  Company Number: US-ALXN-202311USA000858US

PATIENT
  Sex: Female

DRUGS (1)
  1. STRENSIQ [Suspect]
     Active Substance: ASFOTASE ALFA
     Indication: Hypophosphatasia
     Dosage: UNK
     Route: 058
     Dates: start: 201608

REACTIONS (6)
  - Carpal tunnel syndrome [Unknown]
  - Lower limb fracture [Recovering/Resolving]
  - Complication of device insertion [Recovered/Resolved]
  - Blood pressure increased [Not Recovered/Not Resolved]
  - Stress fracture [Recovering/Resolving]
  - Inflammation [Unknown]
